FAERS Safety Report 24737539 (Version 1)
Quarter: 2024Q4

REPORT INFORMATION
  Report Type: Report from Study
  Country: GB (occurrence: GB)
  Receive Date: 20241216
  Receipt Date: 20241216
  Transmission Date: 20250115
  Serious: Yes (Other)
  Sender: NOVARTIS
  Company Number: GB-002147023-NVSC2024GB237287

PATIENT
  Sex: Female

DRUGS (1)
  1. COSENTYX [Suspect]
     Active Substance: SECUKINUMAB
     Indication: Psoriatic arthropathy
     Dosage: 300 MG, QMO (LOADING DOSE- WEEK 0,1,2,3,4)
     Route: 058
     Dates: start: 20241128

REACTIONS (4)
  - Kidney infection [Unknown]
  - Headache [Unknown]
  - Illness [Unknown]
  - Burning sensation [Unknown]
